FAERS Safety Report 15715158 (Version 1)
Quarter: 2018Q4

REPORT INFORMATION
  Report Type: Spontaneous
  Country: GR (occurrence: GR)
  Receive Date: 20181212
  Receipt Date: 20181212
  Transmission Date: 20190205
  Serious: Yes (Death, Life-Threatening, Hospitalization, Other)
  Sender: FDA-Public Use
  Company Number: PHHY2018GR182023

PATIENT
  Age: 50 Year
  Sex: Male

DRUGS (9)
  1. DIOVAN [Suspect]
     Active Substance: VALSARTAN
     Indication: PRODUCT USED FOR UNKNOWN INDICATION
     Dosage: 160 MG, QD
     Route: 065
     Dates: start: 2007
  2. LIPITOR [Concomitant]
     Active Substance: ATORVASTATIN CALCIUM
     Indication: PRODUCT USED FOR UNKNOWN INDICATION
     Dosage: 20 MG, QD
     Route: 065
     Dates: start: 2007
  3. BIVALIRUDIN. [Concomitant]
     Active Substance: BIVALIRUDIN
     Indication: PRODUCT USED FOR UNKNOWN INDICATION
     Dosage: 0.75 MG/KG, BOLUS
     Route: 065
  4. BIVALIRUDIN. [Concomitant]
     Active Substance: BIVALIRUDIN
     Dosage: 1.75 MG/KG, QH
     Route: 041
  5. SALOSPIR [Concomitant]
     Active Substance: ASPIRIN
     Indication: PRODUCT USED FOR UNKNOWN INDICATION
     Dosage: 100 MG, QD
     Route: 065
     Dates: start: 2007
  6. MONOSORDIL [Concomitant]
     Indication: PRODUCT USED FOR UNKNOWN INDICATION
     Dosage: 60 MG, QD
     Route: 065
     Dates: start: 2007
  7. HEPARIN [Concomitant]
     Active Substance: HEPARIN SODIUM
     Indication: PRODUCT USED FOR UNKNOWN INDICATION
     Dosage: 50 IU, UNK
     Route: 013
  8. CLOPIDOGREL [Concomitant]
     Active Substance: CLOPIDOGREL BISULFATE
     Indication: PRODUCT USED FOR UNKNOWN INDICATION
     Dosage: 75 MG, QD
     Route: 065
     Dates: start: 2007
  9. LOPRESSOR [Concomitant]
     Active Substance: METOPROLOL TARTRATE
     Indication: PRODUCT USED FOR UNKNOWN INDICATION
     Dosage: 100 MG, (1-1/2-1)
     Route: 065
     Dates: start: 2007

REACTIONS (11)
  - Type I hypersensitivity [Fatal]
  - Dyspnoea [Fatal]
  - Kounis syndrome [Fatal]
  - Hypotension [Fatal]
  - Allergic oedema [Fatal]
  - Erythema [Fatal]
  - Flushing [Fatal]
  - Vascular stent thrombosis [Fatal]
  - Hyperventilation [Fatal]
  - Anaphylactic reaction [Fatal]
  - Asthma [Fatal]
